FAERS Safety Report 14532284 (Version 1)
Quarter: 2018Q1

REPORT INFORMATION
  Report Type: Spontaneous
  Country: BR (occurrence: BR)
  Receive Date: 20180214
  Receipt Date: 20180214
  Transmission Date: 20180509
  Serious: Yes (Other)
  Sender: FDA-Public Use
  Company Number: PHHY2018BR024342

PATIENT
  Sex: Female
  Weight: 58 kg

DRUGS (2)
  1. OLCADIL [Suspect]
     Active Substance: CLOXAZOLAM
     Indication: VASCULAR DEMENTIA
     Route: 065
  2. ZILEDON [Suspect]
     Active Substance: DONEPEZIL HYDROCHLORIDE
     Indication: VASCULAR DEMENTIA
     Dosage: 10 MG, QHS
     Route: 048

REACTIONS (2)
  - Cerebrovascular accident [Unknown]
  - Product use in unapproved indication [Unknown]
